FAERS Safety Report 4280491-X (Version None)
Quarter: 2004Q1

REPORT INFORMATION
  Report Type: 
  Country: None (occurrence: None)
  Receive Date: 20040128
  Receipt Date: 20040128
  Transmission Date: 20041129
  Serious: Yes (Hospitalization, Other)
  Sender: FDA-Public Use
  Company Number: None

PATIENT
  Sex: Male

DRUGS (1)
  1. OXALIPLATIN [Suspect]
     Indication: RECTAL CANCER
     Dosage: 275 MG OVER 4 HOU INTRAVENOUS
     Route: 042
     Dates: start: 20031112, end: 20031112

REACTIONS (3)
  - DIZZINESS [None]
  - HYPOAESTHESIA [None]
  - PAIN [None]
